FAERS Safety Report 9185569 (Version 1)
Quarter: 2013Q1

REPORT INFORMATION
  Report Type: Spontaneous
  Country: CN (occurrence: None)
  Receive Date: 20130321
  Receipt Date: 20130321
  Transmission Date: 20140127
  Serious: Yes (Hospitalization)
  Sender: FDA-Public Use
  Company Number: IPC201303-000077

PATIENT
  Age: 77 Year
  Sex: Male
  Weight: 58 kg

DRUGS (6)
  1. FUROSEMIDE [Suspect]
     Route: 054
  2. EDARAVONE [Suspect]
  3. MANNITOL [Suspect]
  4. AMINOPYRINE [Suspect]
     Route: 030
  5. DICLOFENAC [Suspect]
  6. GLYCERINE [Suspect]

REACTIONS (5)
  - Renal failure acute [None]
  - Lung infection [None]
  - Drug interaction [None]
  - Depressed level of consciousness [None]
  - Nephropathy toxic [None]
